FAERS Safety Report 10505619 (Version 2)
Quarter: 2014Q4

REPORT INFORMATION
  Report Type: Spontaneous
  Country: US (occurrence: US)
  Receive Date: 20141008
  Receipt Date: 20141023
  Transmission Date: 20150528
  Serious: Yes (Hospitalization)
  Sender: FDA-Public Use
  Company Number: US-B.I. PHARMACEUTICALS,INC./RIDGEFIELD-2014-BI-47578BP

PATIENT
  Age: 90 Year
  Sex: Female

DRUGS (2)
  1. ASA [Concomitant]
     Active Substance: ASPIRIN
     Indication: PRODUCT USED FOR UNKNOWN INDICATION
     Dosage: STRENGTH: 81
     Route: 065
  2. PRADAXA [Suspect]
     Active Substance: DABIGATRAN ETEXILATE MESYLATE
     Indication: ATRIAL FIBRILLATION
     Dosage: 300 MG
     Route: 048
     Dates: start: 201206, end: 201308

REACTIONS (6)
  - Vaginal infection [Unknown]
  - Gastrointestinal haemorrhage [Recovered/Resolved]
  - Helicobacter test positive [Unknown]
  - Gastritis [Unknown]
  - Gastric ulcer [Unknown]
  - Diverticulum oesophageal [Unknown]

NARRATIVE: CASE EVENT DATE: 201301
